FAERS Safety Report 4880014-8 (Version None)
Quarter: 2006Q1

REPORT INFORMATION
  Report Type: 
  Country: None (occurrence: None)
  Receive Date: 20060111
  Receipt Date: 20051223
  Transmission Date: 20060701
  Serious: Yes (Other)
  Sender: FDA-Public Use
  Company Number: US200512003468

PATIENT
  Age: 60 Year
  Sex: Female
  Weight: 55.2 kg

DRUGS (5)
  1. FORTEO (TERIPARATIDE) PEN, DISPOSABLE [Suspect]
     Indication: OSTEOPOROSIS
     Dates: start: 20051126, end: 20051207
  2. FORTEO [Concomitant]
  3. PAXIL [Concomitant]
  4. OXYCODONE (OXYCODONE) [Concomitant]
  5. LISINOPRIL [Concomitant]

REACTIONS (4)
  - BENCE JONES PROTEIN URINE PRESENT [None]
  - HAEMOGLOBIN DECREASED [None]
  - MULTIPLE MYELOMA [None]
  - PROTEIN TOTAL INCREASED [None]
